FAERS Safety Report 4707181-0 (Version None)
Quarter: 2005Q3

REPORT INFORMATION
  Report Type: 
  Country: None (occurrence: None)
  Receive Date: 20050701
  Receipt Date: 20050620
  Transmission Date: 20060218
  Serious: Yes (Other)
  Sender: FDA-Public Use
  Company Number: AUS037709

PATIENT
  Age: 75 Year
  Sex: Female

DRUGS (7)
  1. ARANESP [Suspect]
     Indication: RENAL FAILURE CHRONIC
     Dosage: 60 MCG, WEEKLY, SC
     Route: 058
     Dates: start: 20020506, end: 20020614
  2. SODIUM BICARBONATO [Concomitant]
  3. PARACETAMOL ISOSORBIDE  MONONITRATE [Concomitant]
  4. SIMVASTTIN [Concomitant]
  5. METOPROLOL TARTRATE [Concomitant]
  6. ACETYLSALICYLATE CALCIUM [Concomitant]
  7. TRAMADOL HCL [Concomitant]

REACTIONS (5)
  - ANGIONEUROTIC OEDEMA [None]
  - SKIN EXFOLIATION [None]
  - SKIN TEST POSITIVE [None]
  - SWELLING FACE [None]
  - URTICARIA GENERALISED [None]
